FAERS Safety Report 5245850-7 (Version None)
Quarter: 2007Q1

REPORT INFORMATION
  Report Type: 
  Country: None (occurrence: None)
  Receive Date: 20070216
  Receipt Date: 20070202
  Transmission Date: 20070707
  Serious: Yes (Other)
  Sender: FDA-Public Use
  Company Number: S07-USA-00545-01

PATIENT
  Age: 14 Year
  Sex: Female

DRUGS (3)
  1. LEXAPRO [Suspect]
     Indication: DEPRESSION
     Dosage: 10 MG QD PO
     Route: 048
     Dates: start: 20060601, end: 20060101
  2. LEXAPRO [Suspect]
     Indication: DEPRESSION
     Dosage: 20 MG QD PO
     Route: 048
     Dates: start: 20060101, end: 20060701
  3. KLONOPIN [Concomitant]

REACTIONS (6)
  - AGGRESSION [None]
  - BONE PAIN [None]
  - HYPOAESTHESIA [None]
  - NO THERAPEUTIC RESPONSE [None]
  - PAIN [None]
  - SELF-INJURIOUS IDEATION [None]
